FAERS Safety Report 20573153 (Version 7)
Quarter: 2024Q1

REPORT INFORMATION
  Report Type: Spontaneous
  Country: US (occurrence: US)
  Receive Date: 20220309
  Receipt Date: 20240302
  Transmission Date: 20240409
  Serious: Yes (Disabling, Other)
  Sender: FDA-Public Use
  Company Number: US-ORGANON-O2203USA000812

PATIENT
  Sex: Male
  Weight: 68.027 kg

DRUGS (2)
  1. SINGULAIR [Suspect]
     Active Substance: MONTELUKAST SODIUM
     Dosage: UNK
     Route: 048
     Dates: start: 2003, end: 2021
  2. SINGULAIR [Suspect]
     Active Substance: MONTELUKAST SODIUM
     Dosage: 1 DOSAGE FORM, IN THE EVENING FOR 90 DAYS.
     Route: 048
     Dates: start: 20230218

REACTIONS (26)
  - Neuropsychological symptoms [Not Recovered/Not Resolved]
  - Obsessive-compulsive disorder [Not Recovered/Not Resolved]
  - Social anxiety disorder [Not Recovered/Not Resolved]
  - Depression [Not Recovered/Not Resolved]
  - Developmental delay [Not Recovered/Not Resolved]
  - Derealisation [Not Recovered/Not Resolved]
  - Dysphonia [Not Recovered/Not Resolved]
  - Sensory disturbance [Not Recovered/Not Resolved]
  - Communication disorder [Not Recovered/Not Resolved]
  - Dysarthria [Not Recovered/Not Resolved]
  - Intelligence test abnormal [Not Recovered/Not Resolved]
  - Autism spectrum disorder [Unknown]
  - Suicidal ideation [Unknown]
  - Fatigue [Unknown]
  - Panic attack [Unknown]
  - Anxiety [Unknown]
  - Hyperlipidaemia [Unknown]
  - Fatigue [Unknown]
  - Weight decreased [Unknown]
  - Chronic obstructive pulmonary disease [Unknown]
  - Asthma [Not Recovered/Not Resolved]
  - Eye irritation [Unknown]
  - Pinguecula [Unknown]
  - Attention deficit hyperactivity disorder [Unknown]
  - Rhinitis allergic [Unknown]
  - Joint dislocation [Unknown]

NARRATIVE: CASE EVENT DATE: 20030101
